FAERS Safety Report 6710515-9 (Version None)
Quarter: 2010Q2

REPORT INFORMATION
  Report Type: 
  Country: None (occurrence: None)
  Receive Date: 20100504
  Receipt Date: 20090220
  Transmission Date: 20101027
  Serious: Yes (Other)
  Sender: FDA-Public Use
  Company Number: CH-BAYER-200914838GPV

PATIENT
  Age: 62 Year
  Sex: Male
  Weight: 61 kg

DRUGS (8)
  1. VARDENAFIL HYDROCHLORIDE (LEVITRA) [Suspect]
     Indication: ERECTILE DYSFUNCTION
     Route: 048
     Dates: start: 20080301, end: 20090101
  2. SILDENAFIL [Suspect]
     Indication: ERECTILE DYSFUNCTION
     Route: 048
     Dates: start: 20080301, end: 20090101
  3. TADALAFIL [Suspect]
     Indication: ERECTILE DYSFUNCTION
     Route: 048
     Dates: start: 20080301, end: 20090101
  4. HYDROCORTISONE [Concomitant]
     Indication: ADDISON'S DISEASE
     Dosage: UNIT DOSE: 15 MG
     Route: 048
     Dates: start: 19930101
  5. FLORINEF [Concomitant]
     Indication: ADDISON'S DISEASE
     Dosage: UNIT DOSE: 0.05 MG
     Route: 048
     Dates: start: 19930101
  6. TESTOSTERONE [Concomitant]
     Indication: ADDISON'S DISEASE
     Dosage: UNIT DOSE: 25 MG
     Route: 061
     Dates: start: 20040101
  7. SIMVASTATIN [Concomitant]
     Indication: HYPERLIPIDAEMIA
     Dosage: UNIT DOSE: 40 MG
     Route: 048
     Dates: start: 20060101
  8. COLECALCIFEROL [Concomitant]
     Indication: OSTEOPOROSIS
     Route: 048
     Dates: start: 20040101

REACTIONS (2)
  - COORDINATION ABNORMAL [None]
  - GAIT DISTURBANCE [None]
